FAERS Safety Report 15125598 (Version 2)
Quarter: 2018Q3

REPORT INFORMATION
  Report Type: Spontaneous
  Country: ZA (occurrence: ZA)
  Receive Date: 20180710
  Receipt Date: 20180808
  Transmission Date: 20181010
  Serious: Yes (Hospitalization, Other)
  Sender: FDA-Public Use
  Company Number: ZA-PFIZER INC-2018234935

PATIENT
  Age: 49 Year
  Sex: Female

DRUGS (6)
  1. NOVOMIX [Suspect]
     Active Substance: INSULIN ASPART
     Dosage: 100UNITS/ML
  2. ECOTRIN [Suspect]
     Active Substance: ASPIRIN
     Dosage: 81 MG, UNK
  3. ASPAVOR [Suspect]
     Active Substance: ATORVASTATIN
     Indication: BLOOD CHOLESTEROL
     Dosage: 40 MG, UNK
     Dates: start: 2012
  4. CARVETREND [Suspect]
     Active Substance: CARVEDILOL
     Dosage: 6.25 MG, UNK
  5. BIGSENS [Suspect]
     Active Substance: METFORMIN HYDROCHLORIDE
     Dosage: 1000 MG, UNK
  6. CO?DIOVAN [Suspect]
     Active Substance: HYDROCHLOROTHIAZIDE\VALSARTAN
     Dosage: 320/25 MG

REACTIONS (2)
  - Cerebrovascular accident [Recovering/Resolving]
  - Stress [Recovering/Resolving]
